FAERS Safety Report 23420131 (Version 2)
Quarter: 2024Q2

REPORT INFORMATION
  Report Type: Other
  Country: US (occurrence: None)
  Receive Date: 20240119
  Receipt Date: 20240607
  Transmission Date: 20240716
  Serious: Yes (Death, Other)
  Sender: FDA-Public Use
  Company Number: US-ROCHE-3493334

PATIENT

DRUGS (5)
  1. COBIMETINIB [Suspect]
     Active Substance: COBIMETINIB
     Indication: Inflammatory carcinoma of the breast
     Dosage: 60/40/20 MG ONCE DAILY
     Route: 048
  2. ATEZOLIZUMAB [Suspect]
     Active Substance: ATEZOLIZUMAB
     Indication: Inflammatory carcinoma of the breast
     Route: 065
  3. ATEZOLIZUMAB [Suspect]
     Active Substance: ATEZOLIZUMAB
     Dosage: DURING THE PD WINDOW AND CYCLES 1-4, AND THEN EVERY 4 WEEKS (1680 MG) DURING MAINTENANCE
     Route: 065
  4. ERIBULIN [Suspect]
     Active Substance: ERIBULIN
     Indication: Inflammatory carcinoma of the breast
     Dosage: ON DAY 1 AND DAY 8 OF 21-DAY CYCLES
     Route: 065
  5. ERIBULIN [Suspect]
     Active Substance: ERIBULIN
     Dosage: ON DAY 1 AND 8
     Route: 065

REACTIONS (11)
  - Immune-mediated enterocolitis [Fatal]
  - Neutrophil count decreased [Unknown]
  - White blood cell count decreased [Unknown]
  - Diarrhoea [Unknown]
  - Anaemia [Unknown]
  - Lymphocyte count decreased [Unknown]
  - Sepsis [Unknown]
  - Autoimmune hepatitis [Unknown]
  - Cardiac dysfunction [Unknown]
  - Gastrointestinal toxicity [Unknown]
  - Pneumonitis [Unknown]
